FAERS Safety Report 10426594 (Version 2)
Quarter: 2015Q3

REPORT INFORMATION
  Report Type: Spontaneous
  Country: DK (occurrence: DK)
  Receive Date: 20140903
  Receipt Date: 20150925
  Transmission Date: 20151125
  Serious: Yes (Disabling)
  Sender: FDA-Public Use
  Company Number: DK-JNJFOC-20140824988

PATIENT
  Age: 49 Year
  Sex: Female
  Weight: 91 kg

DRUGS (2)
  1. CONTALGIN [Concomitant]
     Active Substance: MORPHINE SULFATE
     Indication: NEURALGIA
     Route: 048
     Dates: start: 19990629
  2. TOPAMAX [Suspect]
     Active Substance: TOPIRAMATE
     Indication: NEURALGIA
     Route: 048
     Dates: start: 20060801, end: 20130226

REACTIONS (5)
  - Tooth erosion [Unknown]
  - Dry mouth [Unknown]
  - Tooth loss [Unknown]
  - Dental caries [Not Recovered/Not Resolved]
  - Product use issue [Unknown]

NARRATIVE: CASE EVENT DATE: 20080101
